FAERS Safety Report 16019289 (Version 1)
Quarter: 2019Q1

REPORT INFORMATION
  Report Type: Spontaneous
  Country: US (occurrence: US)
  Receive Date: 20190228
  Receipt Date: 20190228
  Transmission Date: 20190418
  Serious: Yes (Hospitalization)
  Sender: FDA-Public Use
  Company Number: US-TEVA-2019-US-1017244

PATIENT
  Age: 6 Decade
  Sex: Female

DRUGS (3)
  1. PACLITAXEL. [Suspect]
     Active Substance: PACLITAXEL
     Indication: SQUAMOUS CELL CARCINOMA OF THE CERVIX
     Route: 065
  2. FILGRASTIM [Concomitant]
     Active Substance: FILGRASTIM
     Route: 065
  3. CARBOPLATIN. [Concomitant]
     Active Substance: CARBOPLATIN
     Indication: SQUAMOUS CELL CARCINOMA OF THE CERVIX
     Dosage: AUC 5
     Route: 065

REACTIONS (2)
  - Diarrhoea [Unknown]
  - Neutropenia [Unknown]
